FAERS Safety Report 8425740-9 (Version None)
Quarter: 2012Q2

REPORT INFORMATION
  Report Type: 
  Country: None (occurrence: None)
  Receive Date: 20120611
  Receipt Date: 20120607
  Transmission Date: 20120825
  Serious: Yes (Death)
  Sender: FDA-Public Use
  Company Number: PHHY2012FR049227

PATIENT
  Age: 66 Year
  Sex: Female
  Weight: 54 kg

DRUGS (4)
  1. ZOLEDRONOC ACID [Suspect]
     Indication: OSTEOPOROSIS
     Dosage: UNK UKN, UNK
     Route: 042
  2. METHOTREXATE SODIUM [Concomitant]
     Dosage: UNK UKN, UNK
     Dates: start: 20100101
  3. PREDNISONE TAB [Concomitant]
     Dosage: UNK UKN, UNK
     Dates: start: 20100101
  4. FOLIC ACID [Concomitant]
     Dosage: UNK UKN, UNK
     Dates: start: 20100101, end: 20110101

REACTIONS (1)
  - DEATH [None]
